FAERS Safety Report 5332095-5 (Version None)
Quarter: 2007Q2

REPORT INFORMATION
  Report Type: 
  Country: None (occurrence: None)
  Receive Date: 20070523
  Receipt Date: 20070517
  Transmission Date: 20071010
  Serious: Yes (Death, Hospitalization)
  Sender: FDA-Public Use
  Company Number: IN-BRISTOL-MYERS SQUIBB COMPANY-13785423

PATIENT
  Age: 50 Year
  Sex: Female

DRUGS (1)
  1. BARACLUDE [Suspect]
     Route: 048
     Dates: start: 20070222, end: 20070403

REACTIONS (3)
  - ASCITES [None]
  - DEATH [None]
  - JAUNDICE [None]
